FAERS Safety Report 23590626 (Version 2)
Quarter: 2024Q1

REPORT INFORMATION
  Report Type: Report from Study
  Country: US (occurrence: US)
  Receive Date: 20240304
  Receipt Date: 20240307
  Transmission Date: 20240410
  Serious: Yes (Hospitalization, Other)
  Sender: FDA-Public Use
  Company Number: US-GILEAD-2024-0663664

PATIENT
  Age: 59 Year
  Sex: Female

DRUGS (13)
  1. AZTREONAM LYSINE [Suspect]
     Active Substance: AZTREONAM LYSINE
     Indication: Cystic fibrosis
     Dosage: 75 MG, TID,  INHALE SOL. INHALE 1ML VIA NEBULIZER 3X DAILY. USE FOR 28 DAYS ION THEN 28 DAYS OFF.
     Route: 055
     Dates: start: 20220630
  2. INSULIN NOS [Concomitant]
     Active Substance: INSULIN NOS
  3. CIPROFLOXACIN [Concomitant]
     Active Substance: CIPROFLOXACIN
  4. PANTOPRAZOLE [Concomitant]
     Active Substance: PANTOPRAZOLE
     Dosage: UNK
  5. OYSTER SHELL [Concomitant]
     Active Substance: OSTREA EDULIS SHELL
  6. PREMPRO [Concomitant]
     Active Substance: ESTROGENS, CONJUGATED\MEDROXYPROGESTERONE ACETATE
  7. BUDESONIDE [Concomitant]
     Active Substance: BUDESONIDE
  8. POLYETHYLENE GLYCOL ELECTROLYTE POWDER(I) [Concomitant]
  9. CREON [Concomitant]
     Active Substance: PANCRELIPASE AMYLASE\PANCRELIPASE LIPASE\PANCRELIPASE PROTEASE
  10. AZITHROMYCIN [Concomitant]
     Active Substance: AZITHROMYCIN
  11. DULERA [Concomitant]
     Active Substance: FORMOTEROL FUMARATE DIHYDRATE\MOMETASONE FUROATE
  12. FERROUS SULFATE [Concomitant]
     Active Substance: FERROUS SULFATE
  13. MINERALS\VITAMINS [Concomitant]
     Active Substance: MINERALS\VITAMINS

REACTIONS (2)
  - Cystic fibrosis [Unknown]
  - Influenza [Unknown]

NARRATIVE: CASE EVENT DATE: 20240215
